FAERS Safety Report 6962902-1 (Version None)
Quarter: 2010Q3

REPORT INFORMATION
  Report Type: 
  Country: None (occurrence: None)
  Receive Date: 20100902
  Receipt Date: 20100831
  Transmission Date: 20110219
  Serious: No
  Sender: FDA-Public Use
  Company Number: US-PFIZER INC-2010109674

PATIENT

DRUGS (1)
  1. DETROL LA [Suspect]
     Dosage: 4 MG, UNK
     Dates: start: 20100826

REACTIONS (1)
  - DRUG INEFFECTIVE [None]
